FAERS Safety Report 9093243 (Version 1)
Quarter: 2013Q1

REPORT INFORMATION
  Report Type: Report from Study
  Country: US (occurrence: US)
  Receive Date: 20130131
  Receipt Date: 20130131
  Transmission Date: 20140127
  Serious: No
  Sender: FDA-Public Use
  Company Number: US-ABBOTT-12P-163-1002888-00

PATIENT
  Age: 31 Year
  Sex: Female

DRUGS (6)
  1. HUMIRA [Suspect]
     Indication: CROHN^S DISEASE
     Route: 058
     Dates: start: 20120906
  2. PENTASA [Concomitant]
     Indication: CROHN^S DISEASE
     Route: 048
  3. CARAFATE [Concomitant]
     Indication: ABDOMINAL DISCOMFORT
     Dosage: 1 GM DAILY
     Route: 048
  4. HYDROCODONE [Concomitant]
     Indication: PAIN
     Route: 048
  5. UNKNOWN STEROIDS [Concomitant]
     Indication: PRODUCT USED FOR UNKNOWN INDICATION
  6. BUTALBITAL CAFFEINE TABLETS [Concomitant]
     Indication: MIGRAINE
     Dosage: 40 MG DAILY
     Route: 048

REACTIONS (5)
  - Pyrexia [Not Recovered/Not Resolved]
  - Crohn^s disease [Not Recovered/Not Resolved]
  - Abdominal pain upper [Not Recovered/Not Resolved]
  - Nausea [Not Recovered/Not Resolved]
  - Anxiety [Not Recovered/Not Resolved]
